FAERS Safety Report 10913402 (Version 1)
Quarter: 2015Q1

REPORT INFORMATION
  Report Type: Spontaneous
  Country: US (occurrence: None)
  Receive Date: 20150310
  Receipt Date: 20150310
  Transmission Date: 20150721
  Serious: No
  Sender: FDA-Public Use
  Company Number: None

PATIENT

DRUGS (2)
  1. ROCURONIUM [Suspect]
     Active Substance: ROCURONIUM BROMIDE
     Indication: INDUCTION OF ANAESTHESIA
     Route: 042
     Dates: start: 20150305, end: 20150306
  2. ROCURONIUM [Suspect]
     Active Substance: ROCURONIUM BROMIDE
     Indication: SEDATION
     Route: 042
     Dates: start: 20150305, end: 20150306

REACTIONS (2)
  - Anaesthetic complication [None]
  - Muscular weakness [None]

NARRATIVE: CASE EVENT DATE: 20150306
